FAERS Safety Report 7115749-X (Version None)
Quarter: 2010Q4

REPORT INFORMATION
  Report Type: 
  Country: None (occurrence: None)
  Receive Date: 20101122
  Receipt Date: 20101115
  Transmission Date: 20110411
  Serious: Yes (Hospitalization)
  Sender: FDA-Public Use
  Company Number: DE-ABBOTT-10P-062-0667839-00

PATIENT
  Sex: Female

DRUGS (5)
  1. HUMIRA [Suspect]
     Indication: PSORIASIS
     Route: 058
     Dates: start: 20100317, end: 20100623
  2. ACETYLIC SALICYLATE ACID(ASS10) [Concomitant]
     Indication: PRODUCT USED FOR UNKNOWN INDICATION
     Dosage: PD
  3. PANTOPRAZOLE SODIUM [Concomitant]
     Indication: PRODUCT USED FOR UNKNOWN INDICATION
  4. PREDNISONE [Concomitant]
     Indication: PRODUCT USED FOR UNKNOWN INDICATION
  5. AMPHOTERICIN(AMPHO MORONAL) [Concomitant]
     Indication: PRODUCT USED FOR UNKNOWN INDICATION
     Dosage: QID, PIPETTE, FOR 14DAYS

REACTIONS (7)
  - COLITIS [None]
  - DIARRHOEA [None]
  - DUODENAL ULCER [None]
  - ILL-DEFINED DISORDER [None]
  - ORAL CANDIDIASIS [None]
  - REFLUX OESOPHAGITIS [None]
  - VOMITING [None]
